FAERS Safety Report 8188225-3 (Version None)
Quarter: 2012Q1

REPORT INFORMATION
  Report Type: 
  Country: None (occurrence: None)
  Receive Date: 20120306
  Receipt Date: 20120229
  Transmission Date: 20120608
  Serious: Yes (Other)
  Sender: FDA-Public Use
  Company Number: US-ASTRAZENECA-2012SE13995

PATIENT
  Age: 61 Year
  Sex: Female
  Weight: 136.1 kg

DRUGS (3)
  1. PRILOSEC OTC [Suspect]
     Indication: GASTROOESOPHAGEAL REFLUX DISEASE
     Route: 048
  2. NEXIUM [Suspect]
     Indication: GASTROOESOPHAGEAL REFLUX DISEASE
     Route: 048
  3. INSULIN [Concomitant]
     Indication: DIABETES MELLITUS
     Dosage: 5 SHOTS

REACTIONS (7)
  - MALAISE [None]
  - DRUG DOSE OMISSION [None]
  - DRUG INEFFECTIVE [None]
  - GASTRIC DISORDER [None]
  - RENAL FAILURE [None]
  - PHARYNGEAL DISORDER [None]
  - GASTROOESOPHAGEAL REFLUX DISEASE [None]
